FAERS Safety Report 6771947-6 (Version None)
Quarter: 2010Q2

REPORT INFORMATION
  Report Type: 
  Country: None (occurrence: None)
  Receive Date: 20100616
  Receipt Date: 20100611
  Transmission Date: 20101027
  Serious: Yes (Life-Threatening, Hospitalization, Other)
  Sender: FDA-Public Use
  Company Number: JP-SANOFI-AVENTIS-2010SA033835

PATIENT
  Age: 60 Year
  Sex: Female
  Weight: 40 kg

DRUGS (8)
  1. ELPLAT [Suspect]
     Indication: RECTAL CANCER
     Route: 042
     Dates: start: 20081021, end: 20081021
  2. ELPLAT [Suspect]
     Route: 042
     Dates: start: 20081104, end: 20081104
  3. CALCIUM LEVOFOLINATE [Suspect]
     Indication: RECTAL CANCER
     Route: 042
     Dates: start: 20081021, end: 20081021
  4. CALCIUM LEVOFOLINATE [Suspect]
     Route: 042
     Dates: start: 20081104, end: 20081104
  5. BEVACIZUMAB [Suspect]
     Indication: RECTAL CANCER
     Route: 042
     Dates: start: 20081021, end: 20081021
  6. BEVACIZUMAB [Suspect]
     Route: 042
     Dates: start: 20081104, end: 20081104
  7. FLUOROURACIL [Concomitant]
     Indication: RECTAL CANCER
     Route: 042
     Dates: start: 20081021, end: 20081021
  8. FLUOROURACIL [Concomitant]
     Route: 042
     Dates: start: 20081101, end: 20081101

REACTIONS (3)
  - ABDOMINAL ABSCESS [None]
  - INFECTION [None]
  - RECTAL PERFORATION [None]
